FAERS Safety Report 17888814 (Version 1)
Quarter: 2020Q2

REPORT INFORMATION
  Report Type: Spontaneous
  Country: US (occurrence: US)
  Receive Date: 20200612
  Receipt Date: 20200612
  Transmission Date: 20200714
  Serious: No
  Sender: FDA-Public Use
  Company Number: US-JNJFOC-20200614652

PATIENT
  Sex: Female

DRUGS (1)
  1. REMICADE [Suspect]
     Active Substance: INFLIXIMAB
     Indication: COLITIS ULCERATIVE
     Dosage: 10 MG/ML
     Route: 042

REACTIONS (4)
  - Abdominal pain upper [Unknown]
  - Arthralgia [Unknown]
  - Skin discolouration [Unknown]
  - Feeling abnormal [Unknown]
